FAERS Safety Report 9017562 (Version 2)
Quarter: 2013Q1

REPORT INFORMATION
  Report Type: Report from Study
  Country: US (occurrence: US)
  Receive Date: 20130117
  Receipt Date: 20130131
  Transmission Date: 20140127
  Serious: Yes (Hospitalization)
  Sender: FDA-Public Use
  Company Number: US-PFIZER INC-2013013216

PATIENT
  Age: 70 Year
  Sex: Female
  Weight: 86 kg

DRUGS (30)
  1. BLINDED CELECOXIB [Suspect]
     Indication: OSTEOARTHRITIS
     Dosage: TID
     Route: 048
     Dates: start: 20090723, end: 20100701
  2. BLINDED IBUPROFEN [Suspect]
     Indication: OSTEOARTHRITIS
     Dosage: TID
     Route: 048
     Dates: start: 20090723, end: 20100701
  3. BLINDED IBUPROFEN [Suspect]
     Indication: OSTEOARTHRITIS
     Dosage: TID
     Route: 048
     Dates: start: 20090723, end: 20100701
  4. BLINDED IBUPROFEN [Suspect]
     Indication: OSTEOARTHRITIS
     Dosage: TID
     Route: 048
     Dates: start: 20090723, end: 20100701
  5. BLINDED NAPROXEN [Suspect]
     Indication: OSTEOARTHRITIS
     Dosage: TID
     Route: 048
     Dates: start: 20090723, end: 20100701
  6. BLINDED NAPROXEN [Suspect]
     Indication: OSTEOARTHRITIS
     Dosage: TID
     Route: 048
     Dates: start: 20090723, end: 20100701
  7. BLINDED NAPROXEN [Suspect]
     Indication: OSTEOARTHRITIS
     Dosage: TID
     Route: 048
     Dates: start: 20090723, end: 20100701
  8. BLINDED NO SUBJECT DRUG [Suspect]
     Indication: OSTEOARTHRITIS
     Dosage: TID
     Route: 048
     Dates: start: 20090723, end: 20100701
  9. BLINDED PLACEBO [Suspect]
     Indication: OSTEOARTHRITIS
     Dosage: TID
     Route: 048
     Dates: start: 20090723, end: 20100701
  10. BLINDED CELECOXIB [Suspect]
     Indication: RHEUMATOID ARTHRITIS
  11. BLINDED IBUPROFEN [Suspect]
     Indication: RHEUMATOID ARTHRITIS
  12. BLINDED IBUPROFEN [Suspect]
     Indication: RHEUMATOID ARTHRITIS
  13. BLINDED IBUPROFEN [Suspect]
     Indication: RHEUMATOID ARTHRITIS
  14. BLINDED NAPROXEN [Suspect]
     Indication: RHEUMATOID ARTHRITIS
  15. BLINDED NAPROXEN [Suspect]
     Indication: RHEUMATOID ARTHRITIS
  16. BLINDED NAPROXEN [Suspect]
     Indication: RHEUMATOID ARTHRITIS
  17. BLINDED NO SUBJECT DRUG [Suspect]
     Indication: RHEUMATOID ARTHRITIS
  18. BLINDED PLACEBO [Suspect]
     Indication: RHEUMATOID ARTHRITIS
  19. GLIPIZIDE XL [Suspect]
     Indication: TYPE 2 DIABETES MELLITUS
     Dosage: 10 MG, 1X/DAY
     Route: 048
     Dates: start: 20071015
  20. METFORMIN [Suspect]
     Indication: TYPE 2 DIABETES MELLITUS
     Dosage: 850 MG, 1X/DAY
     Route: 048
     Dates: start: 20020802
  21. NEXIUM [Concomitant]
     Indication: PROPHYLAXIS
     Dosage: 20 MG, 1X/DAY
     Route: 048
     Dates: start: 20090723, end: 20100701
  22. LOVASTATIN [Concomitant]
     Indication: DYSLIPIDAEMIA
     Dosage: 20 MG, 1X/DAY
     Route: 048
     Dates: start: 20080625
  23. GEMFIBROZIL [Concomitant]
     Indication: DYSLIPIDAEMIA
     Dosage: 600 MG, 1X/DAY
     Route: 048
     Dates: start: 20030626
  24. ZOLOFT [Concomitant]
     Indication: DEPRESSION
     Dosage: 50 MG, 1X/DAY
     Route: 048
     Dates: start: 20090724
  25. NEURONTIN [Concomitant]
     Indication: TYPE 2 DIABETES MELLITUS
     Dosage: 600 MG, TID
     Route: 048
     Dates: start: 20100423, end: 201107
  26. ELAVIL [Concomitant]
     Indication: ARTHRALGIA
     Dosage: 25 MG, 1X/DAY
     Route: 048
     Dates: start: 20100601
  27. ASA [Concomitant]
     Indication: PROPHYLAXIS
     Dosage: 81 MG, 1X/DAY
     Route: 048
     Dates: start: 2005
  28. ACTOS [Concomitant]
     Indication: TYPE 2 DIABETES MELLITUS
     Dosage: 15 MG, 1X/DAY
     Route: 048
     Dates: start: 20081029
  29. IBUPROFEN [Concomitant]
     Indication: ARTHRALGIA
     Dosage: 400 MG, TID
     Route: 048
     Dates: start: 20100701
  30. IRON [Concomitant]
     Indication: ANAEMIA
     Dosage: 220 MG, 1X/DAY
     Route: 048
     Dates: start: 20101026

REACTIONS (1)
  - Hyperglycaemia [Recovered/Resolved]
